FAERS Safety Report 8859909 (Version 6)
Quarter: 2014Q1

REPORT INFORMATION
  Report Type: Report from Study
  Country: JP (occurrence: JP)
  Receive Date: 20121025
  Receipt Date: 20140127
  Transmission Date: 20141002
  Serious: Yes (Hospitalization)
  Sender: FDA-Public Use
  Company Number: JP-VERTEX PHARMACEUTICAL INC.-2012-023431

PATIENT
  Age: 64 Year
  Sex: Female

DRUGS (22)
  1. VX-950 (TELAPREVIR) [Suspect]
     Indication: CHRONIC HEPATITIS C
     Dosage: 1500 MG, QD
     Route: 048
     Dates: start: 20120827, end: 20121024
  2. PEGINTERFERON ALFA-2B [Suspect]
     Indication: CHRONIC HEPATITIS C
     Dosage: 1.5 ?G/KG, QW
     Route: 058
     Dates: start: 20120827, end: 20121022
  3. RIBAVIRIN [Concomitant]
     Dosage: 800 MG, QD
     Route: 048
     Dates: start: 20120827, end: 20121029
  4. ALFA D [Concomitant]
     Dosage: 1.0 ?G, UNK
     Route: 048
  5. THYRADIN [Concomitant]
     Dosage: 75 ?G, QD
     Route: 048
  6. AMARYL [Concomitant]
     Dosage: 3 MG, QD
     Route: 048
  7. LUDIOMIL [Concomitant]
     Dosage: 10 MG, QD
     Route: 048
  8. PAXIL [Concomitant]
     Dosage: 10 MG, QD
     Route: 048
     Dates: end: 20130103
  9. PREDONINE [Concomitant]
     Dosage: 20 MG, QD
     Route: 048
     Dates: start: 20120827, end: 20120904
  10. PREDONINE [Concomitant]
     Dosage: 15 MG, QD
     Route: 048
     Dates: start: 20120905, end: 20120909
  11. PREDONINE [Concomitant]
     Dosage: 10 MG, QD
     Route: 048
     Dates: start: 20120910, end: 20121024
  12. PREDONINE [Concomitant]
     Dosage: 5 MG, QD
     Route: 048
     Dates: start: 20121025, end: 20121029
  13. PREDONINE [Concomitant]
     Dosage: 3 MG, QD
     Route: 048
     Dates: start: 20121030, end: 20121105
  14. PREDONINE [Concomitant]
     Dosage: 1 MG, QD
     Route: 048
     Dates: start: 20121106, end: 20121109
  15. GASTER D [Concomitant]
     Dosage: 40 MG, QD
     Route: 048
     Dates: start: 20120827, end: 20121126
  16. ALLEGRA [Concomitant]
     Dosage: 120 MG, QD
     Route: 048
     Dates: start: 20120827, end: 20121126
  17. CALONAL [Concomitant]
     Dosage: 600 MG, QD
     Route: 048
     Dates: start: 20120827, end: 20120904
  18. DOGMATYL [Concomitant]
     Dosage: 100 MG, QD
     Route: 048
     Dates: start: 20121009, end: 20121018
  19. DOGMATYL [Concomitant]
     Dosage: 150 MG, QD
     Route: 048
     Dates: start: 20121019, end: 20121203
  20. DOGMATYL [Concomitant]
     Dosage: 100 MG, QD
     Route: 048
     Dates: start: 20121204, end: 20121210
  21. DOGMATYL [Concomitant]
     Dosage: 60 MG, QD
     Route: 048
     Dates: start: 20121211, end: 20121231
  22. EQUA [Concomitant]
     Dosage: 100 MG, QD
     Route: 048
     Dates: start: 20121114

REACTIONS (1)
  - Depressive symptom [Recovered/Resolved]
